FAERS Safety Report 4603566-1 (Version None)
Quarter: 2005Q1

REPORT INFORMATION
  Report Type: 
  Country: None (occurrence: None)
  Receive Date: 20050308
  Receipt Date: 20050302
  Transmission Date: 20050727
  Serious: Yes (Hospitalization, Other)
  Sender: FDA-Public Use
  Company Number: DEWYE470102MAR05

PATIENT
  Age: 65 Year
  Sex: Female

DRUGS (8)
  1. TREVILOR (VENLAFAXINE HYDROCHLORIDE, TABLET, 0) [Suspect]
     Dosage: 150 + 225 + 300 MG PER DAY - SEE IMAGE
     Dates: start: 20010414, end: 20010426
  2. TREVILOR (VENLAFAXINE HYDROCHLORIDE, TABLET, 0) [Suspect]
     Dosage: 150 + 225 + 300 MG PER DAY - SEE IMAGE
     Dates: start: 20010427, end: 20010506
  3. TREVILOR (VENLAFAXINE HYDROCHLORIDE, TABLET, 0) [Suspect]
     Dosage: 150 + 225 + 300 MG PER DAY - SEE IMAGE
     Dates: start: 20010530
  4. TREVILOR (VENLAFAXINE HYDROCHLORIDE, TABLET, 0) [Suspect]
     Dosage: 150 + 225 + 300 MG PER DAY - SEE IMAGE
     Dates: start: 20010507
  5. LORAZEPAM [Concomitant]
  6. DOMINAL (PROTHIPENDYL HYDROCHLORIDE) [Concomitant]
  7. LEVOTHYROXINE SODIUM [Concomitant]
  8. SIMVASTATIN [Concomitant]

REACTIONS (3)
  - DRUG INTERACTION [None]
  - HYPOMANIA [None]
  - SINUS TACHYCARDIA [None]
